FAERS Safety Report 5936623-8 (Version None)
Quarter: 2008Q4

REPORT INFORMATION
  Report Type: 
  Country: None (occurrence: None)
  Receive Date: 20081021
  Receipt Date: 20071109
  Transmission Date: 20090506
  Serious: Yes (Other)
  Sender: FDA-Public Use
  Company Number: HQWYE142407FEB05

PATIENT
  Age: 59 Year
  Sex: Female

DRUGS (3)
  1. PREMARIN [Suspect]
     Dates: start: 19901214, end: 19971120
  2. ESTRACE [Suspect]
     Dates: start: 19870819, end: 19901214
  3. PROVERA [Suspect]
     Dates: start: 19870819, end: 19971120

REACTIONS (1)
  - BREAST CANCER [None]
